FAERS Safety Report 8365531-0 (Version None)
Quarter: 2012Q2

REPORT INFORMATION
  Report Type: 
  Country: None (occurrence: None)
  Receive Date: 20120516
  Receipt Date: 20120504
  Transmission Date: 20120825
  Serious: Yes (Hospitalization)
  Sender: FDA-Public Use
  Company Number: PL-ELI_LILLY_AND_COMPANY-PL201202008273

PATIENT
  Sex: Male
  Weight: 56 kg

DRUGS (3)
  1. TEGRETOL-XR [Concomitant]
     Dosage: UNK, UNKNOWN
  2. OLANZAPINE [Suspect]
     Indication: SCHIZOPHRENIA
     Dosage: 210 MG, UNKNOWN
     Dates: start: 20120125
  3. OLANZAPINE [Concomitant]

REACTIONS (7)
  - SYNCOPE [None]
  - SOMNOLENCE [None]
  - SALIVARY HYPERSECRETION [None]
  - GAIT DISTURBANCE [None]
  - SPEECH DISORDER [None]
  - APATHY [None]
  - DISORIENTATION [None]
